FAERS Safety Report 8719872 (Version 2)
Quarter: 2012Q4

REPORT INFORMATION
  Report Type: 
  Country: US (occurrence: US)
  Receive Date: 20120813
  Receipt Date: 20120925
  Transmission Date: 20130627
  Serious: Yes (Hospitalization, Other)
  Sender: FDA-Public Use
  Company Number: US-BAYER-2012-080640

PATIENT
  Age: 55 Year
  Sex: Female
  Weight: 90.72 kg

DRUGS (6)
  1. MAGNEVIST [Suspect]
     Indication: NUCLEAR MAGNETIC RESONANCE IMAGING BREAST
     Dosage: 10 ml, ONCE
     Route: 042
     Dates: start: 20120801, end: 20120801
  2. LOSARTAN [Concomitant]
     Dosage: 25 mg, QD
     Route: 048
     Dates: start: 20120731
  3. NASONEX [Concomitant]
     Dosage: 50 mcg/actuation
     Route: 045
     Dates: start: 20120731
  4. ASPIRIN [Concomitant]
     Dosage: 81 mg, QD
     Route: 048
     Dates: start: 20120731
  5. LOPRESSOR [Concomitant]
     Dosage: 25 mg, BID
     Route: 048
     Dates: start: 20120731
  6. AMLODIPINE [Concomitant]
     Dosage: 2.5 mg, QD
     Route: 048
     Dates: start: 20120731

REACTIONS (6)
  - Contrast media allergy [None]
  - Angioedema [None]
  - Swelling face [None]
  - Eye swelling [None]
  - Dysarthria [None]
  - Swollen tongue [None]
